FAERS Safety Report 18662077 (Version 6)
Quarter: 2024Q4

REPORT INFORMATION
  Report Type: Report from Study
  Country: US (occurrence: US)
  Receive Date: 20201224
  Receipt Date: 20241001
  Transmission Date: 20250114
  Serious: Yes (Other)
  Sender: TAKEDA
  Company Number: US-TAKEDA-US202012293

PATIENT
  Sex: Female

DRUGS (1)
  1. HUMAN IMMUNOGLOBULIN G [Suspect]
     Active Substance: HUMAN IMMUNOGLOBULIN G
     Indication: Primary immunodeficiency syndrome
     Dosage: UNK
     Route: 042

REACTIONS (12)
  - Spinal fracture [Unknown]
  - Lymphoma [Unknown]
  - COVID-19 [Unknown]
  - Electrocardiogram abnormal [Unknown]
  - Blood disorder [Unknown]
  - Blood immunoglobulin G decreased [Unknown]
  - Insurance issue [Unknown]
  - Hernia [Unknown]
  - Product dose omission issue [Unknown]
  - Product use issue [Unknown]
  - Muscle spasms [Unknown]
  - Fatigue [Unknown]
